FAERS Safety Report 6835672-5 (Version None)
Quarter: 2010Q3

REPORT INFORMATION
  Report Type: 
  Country: None (occurrence: None)
  Receive Date: 20100713
  Receipt Date: 20100702
  Transmission Date: 20110219
  Serious: Yes (Other)
  Sender: FDA-Public Use
  Company Number: NO-PFIZER INC-2010083732

PATIENT
  Sex: Female

DRUGS (1)
  1. DALACIN [Suspect]
     Dosage: 300 MG, UNK
     Dates: end: 20100510

REACTIONS (2)
  - DIARRHOEA HAEMORRHAGIC [None]
  - PRURITUS [None]
